FAERS Safety Report 9697927 (Version 1)
Quarter: 2013Q4

REPORT INFORMATION
  Report Type: Spontaneous
  Country: BR (occurrence: None)
  Receive Date: 20131118
  Receipt Date: 20131118
  Transmission Date: 20140711
  Serious: Yes (Hospitalization)
  Sender: FDA-Public Use
  Company Number: DSU-2013-05093

PATIENT
  Age: 54 Year
  Sex: Female
  Weight: 90 kg

DRUGS (3)
  1. OLMETEC HCT [Suspect]
     Indication: HYPERTENSION
     Route: 048
     Dates: start: 201302, end: 20131105
  2. SIMVASTATIN [Concomitant]
  3. SOTALOL [Concomitant]

REACTIONS (4)
  - Underdose [None]
  - Blood pressure inadequately controlled [None]
  - Hysterectomy [None]
  - Wrong drug administered [None]
